FAERS Safety Report 7815977-1 (Version None)
Quarter: 2011Q4

REPORT INFORMATION
  Report Type: 
  Country: None (occurrence: None)
  Receive Date: 20111014
  Receipt Date: 20111010
  Transmission Date: 20120403
  Serious: Yes (Disabling, Other)
  Sender: FDA-Public Use
  Company Number: GB-MERCK-1110USA01546

PATIENT
  Age: 80 Year
  Sex: Male

DRUGS (4)
  1. DECAPEPTYL [Concomitant]
     Route: 065
  2. DECADRON [Suspect]
     Indication: DECREASED APPETITE
     Route: 048
     Dates: start: 20111001, end: 20111001
  3. MST (MAGNESIUM SALICYLATE) [Concomitant]
     Route: 065
  4. MOVIPREP [Concomitant]
     Route: 065

REACTIONS (3)
  - WHEEZING [None]
  - DYSPNOEA [None]
  - FEAR [None]
